FAERS Safety Report 11156274 (Version 1)
Quarter: 2015Q2

REPORT INFORMATION
  Report Type: Spontaneous
  Country: US (occurrence: None)
  Receive Date: 20150601
  Receipt Date: 20150601
  Transmission Date: 20150821
  Serious: Yes (Other)
  Sender: FDA-Public Use
  Company Number: None

PATIENT
  Age: 28 Year
  Sex: Female

DRUGS (1)
  1. NEXPLANON [Suspect]
     Active Substance: ETONOGESTREL

REACTIONS (7)
  - Anger [None]
  - Homicidal ideation [None]
  - Haemorrhage [None]
  - Hot flush [None]
  - Mood swings [None]
  - Suicidal ideation [None]
  - Weight loss poor [None]
